FAERS Safety Report 4312941-4 (Version None)
Quarter: 2004Q1

REPORT INFORMATION
  Report Type: 
  Country: None (occurrence: None)
  Receive Date: 20040302
  Receipt Date: 20031222
  Transmission Date: 20041129
  Serious: No
  Sender: FDA-Public Use
  Company Number: 701451

PATIENT

DRUGS (2)
  1. AMEVIVE [Suspect]
     Indication: PAIN
     Dosage: 15 MG QW IM
     Route: 030
     Dates: start: 20030101, end: 20030101
  2. AMEVIVE [Suspect]
     Indication: PSORIASIS
     Dosage: 15 MG QW IM
     Route: 030
     Dates: start: 20030101, end: 20030101

REACTIONS (1)
  - RASH MACULAR [None]
